FAERS Safety Report 11699950 (Version 1)
Quarter: 2015Q4

REPORT INFORMATION
  Report Type: Spontaneous
  Country: US (occurrence: None)
  Receive Date: 20151104
  Receipt Date: 20151104
  Transmission Date: 20160304
  Serious: No
  Sender: FDA-Public Use
  Company Number: None

PATIENT
  Age: 64 Year
  Sex: Male
  Weight: 86.7 kg

DRUGS (1)
  1. DASABUVIR/OMBITASVIR/PARITAPREVIR/RITONAVIR [Suspect]
     Active Substance: DASABUVIR\OMBITASVIR\PARITAPREVIR\RITONAVIR
     Indication: HEPATITIS C
     Dosage: 1 TAB, OTHER
     Route: 048
     Dates: start: 20150520, end: 20150530

REACTIONS (6)
  - Headache [None]
  - Disorientation [None]
  - Pain [None]
  - Abdominal discomfort [None]
  - Renal pain [None]
  - Rash [None]

NARRATIVE: CASE EVENT DATE: 20150530
